FAERS Safety Report 22937214 (Version 2)
Quarter: 2023Q4

REPORT INFORMATION
  Report Type: Spontaneous
  Country: FR (occurrence: FR)
  Receive Date: 20230913
  Receipt Date: 20231113
  Transmission Date: 20240110
  Serious: Yes (Other)
  Sender: FDA-Public Use
  Company Number: FR-JNJFOC-20230916268

PATIENT
  Age: 74 Year
  Sex: Male
  Weight: 91 kg

DRUGS (2)
  1. ERLEADA [Suspect]
     Active Substance: APALUTAMIDE
     Indication: Hormone-dependent prostate cancer
     Dosage: 240 MG PER DAY 4 TABLETS
     Route: 048
     Dates: start: 20230603, end: 20230721
  2. GONADORELIN [Concomitant]
     Active Substance: GONADORELIN
     Indication: Hormone-dependent prostate cancer
     Route: 058
     Dates: start: 20230506, end: 20230506

REACTIONS (1)
  - Hepatotoxicity [Recovered/Resolved]

NARRATIVE: CASE EVENT DATE: 20230713
